FAERS Safety Report 8577726 (Version 3)
Quarter: 2013Q2

REPORT INFORMATION
  Report Type: Report from Study
  Country: MX (occurrence: MX)
  Receive Date: 20120524
  Receipt Date: 20130426
  Transmission Date: 20140414
  Serious: Yes (Death, Hospitalization, Other)
  Sender: FDA-Public Use
  Company Number: PHHY2012MX044245

PATIENT
  Age: 73 Year
  Sex: Male

DRUGS (3)
  1. CO-DIOVAN [Suspect]
     Indication: HYPERTENSION
     Dosage: 1 DF (80 MG VALS AND 12.5 MG HCTZ), DAILY
  2. PLAVIX [Concomitant]
     Indication: ANTICOAGULANT THERAPY
     Dosage: 0.5 D (75 MG) DAILY
  3. CORDORONE [Concomitant]
     Dosage: 1 DF, QOD

REACTIONS (3)
  - Cardiogenic shock [Fatal]
  - Oedema peripheral [Unknown]
  - Cardiac failure [Unknown]
